FAERS Safety Report 6475486 (Version 2)
Quarter: 2020Q2

REPORT INFORMATION
  Report Type: Spontaneous
  Country: IN (occurrence: IN)
  Receive Date: 20071127
  Receipt Date: 20200410
  Transmission Date: 20200714
  Serious: Yes (Hospitalization)
  Sender: FDA-Public Use
  Company Number: PHBS2007IN19784

PATIENT
  Age: 70 Year
  Sex: Male

DRUGS (1)
  1. DICLOFENAC [Suspect]
     Active Substance: DICLOFENAC
     Indication: ARTHRALGIA
     Route: 030

REACTIONS (4)
  - Embolia cutis medicamentosa [Recovered/Resolved with Sequelae]
  - Injection site erythema [Recovered/Resolved]
  - Injection site scar [Not Recovered/Not Resolved]
  - Injection site pain [Recovered/Resolved]
